FAERS Safety Report 13156710 (Version 1)
Quarter: 2017Q1

REPORT INFORMATION
  Report Type: Spontaneous
  Country: US (occurrence: US)
  Receive Date: 20170126
  Receipt Date: 20170126
  Transmission Date: 20170428
  Serious: No
  Sender: FDA-Public Use
  Company Number: US-AMGEN-USASP2017008515

PATIENT
  Age: 58 Year
  Sex: Female

DRUGS (15)
  1. ENBREL [Suspect]
     Active Substance: ETANERCEPT
     Indication: RHEUMATOID ARTHRITIS
     Dosage: 50 MG, QWK
     Route: 058
     Dates: start: 2013
  2. METHOTREXATE. [Concomitant]
     Active Substance: METHOTREXATE
  3. HYDROXYCHLOROQUINE [Concomitant]
     Active Substance: HYDROXYCHLOROQUINE
  4. VITAMIN C [Concomitant]
     Active Substance: ASCORBIC ACID
  5. METHYLPREDNISOLONE. [Concomitant]
     Active Substance: METHYLPREDNISOLONE
  6. CHANTIX [Concomitant]
     Active Substance: VARENICLINE TARTRATE
  7. FOLIC ACID. [Concomitant]
     Active Substance: FOLIC ACID
  8. VITAMIN D3 [Concomitant]
     Active Substance: CHOLECALCIFEROL
  9. AMITIZA [Concomitant]
     Active Substance: LUBIPROSTONE
  10. LISINOPRIL/HCTZ [Concomitant]
     Active Substance: HYDROCHLOROTHIAZIDE\LISINOPRIL
  11. CARVEDILOL. [Concomitant]
     Active Substance: CARVEDILOL
  12. ETODOLAC. [Concomitant]
     Active Substance: ETODOLAC
  13. PROAIR HFA [Concomitant]
     Active Substance: ALBUTEROL SULFATE
  14. HYDROCODONE/ACETAMINOPHEN [Concomitant]
     Active Substance: ACETAMINOPHEN\HYDROCODONE
  15. ASMANEX [Concomitant]
     Active Substance: MOMETASONE FUROATE

REACTIONS (4)
  - Pain in extremity [Unknown]
  - Injection site haemorrhage [Unknown]
  - Peripheral swelling [Unknown]
  - Injection site pain [Unknown]

NARRATIVE: CASE EVENT DATE: 201701
